FAERS Safety Report 10740557 (Version 2)
Quarter: 2015Q2

REPORT INFORMATION
  Report Type: Report from Study
  Country: JP (occurrence: JP)
  Receive Date: 20150127
  Receipt Date: 20150623
  Transmission Date: 20150821
  Serious: Yes (Hospitalization)
  Sender: FDA-Public Use
  Company Number: JP-SA-2015SA007262

PATIENT
  Age: 61 Year
  Sex: Male
  Weight: 78 kg

DRUGS (16)
  1. DEXART [Concomitant]
     Active Substance: DEXAMETHASONE SODIUM PHOSPHATE
     Dates: start: 20140704, end: 20140815
  2. CAMPTO [Suspect]
     Active Substance: IRINOTECAN
     Indication: PANCREATIC CARCINOMA
     Dosage: 360 MG/BODY
     Route: 041
     Dates: start: 20140731, end: 20140731
  3. CAMPTO [Suspect]
     Active Substance: IRINOTECAN
     Indication: PANCREATIC CARCINOMA
     Dosage: 360 MG/BODY
     Route: 041
     Dates: start: 20140704, end: 20140704
  4. ELPLAT [Suspect]
     Active Substance: OXALIPLATIN
     Indication: PANCREATIC CARCINOMA
     Dosage: DOSE: 170 MG/BODY
     Route: 041
     Dates: start: 20140719, end: 20140719
  5. CAMPTO [Suspect]
     Active Substance: IRINOTECAN
     Indication: PANCREATIC CARCINOMA
     Dosage: 360 MG/BODY
     Route: 041
     Dates: start: 20140719, end: 20140719
  6. 5-FU [Concomitant]
     Active Substance: FLUOROURACIL
     Dosage: 4800 MG/BODY/D1-2 (2480.6 MG/M2/D1-2) AS CONTINUOUS INFUSION (FOLFIRINOX) ON 04/JUL/2014
     Dates: start: 20140704, end: 20140704
  7. CAMPTO [Suspect]
     Active Substance: IRINOTECAN
     Indication: PANCREATIC CARCINOMA
     Dosage: 360 MG/BODY
     Route: 041
     Dates: start: 20140815, end: 20140815
  8. ELPLAT [Suspect]
     Active Substance: OXALIPLATIN
     Indication: PANCREATIC CARCINOMA
     Dosage: DOSE: 170 MG/BODY
     Route: 041
     Dates: start: 20140704, end: 20140704
  9. ELPLAT [Suspect]
     Active Substance: OXALIPLATIN
     Indication: PANCREATIC CARCINOMA
     Dosage: DOSE: 170 MG/BODY
     Route: 041
     Dates: start: 20140815, end: 20140815
  10. CALCIUM LEVOFOLINATE [Concomitant]
     Active Substance: LEVOLEUCOVORIN CALCIUM
     Dosage: 400 MG/BODY (206.7 MG/M2)
     Dates: start: 20140815, end: 20140815
  11. 5-FU [Concomitant]
     Active Substance: FLUOROURACIL
     Dates: start: 20140815, end: 20140815
  12. ELPLAT [Suspect]
     Active Substance: OXALIPLATIN
     Indication: PANCREATIC CARCINOMA
     Dosage: DOSE: 170 MG/BODY
     Route: 041
     Dates: start: 20140731, end: 20140731
  13. CAMPTO [Suspect]
     Active Substance: IRINOTECAN
     Indication: PANCREATIC CARCINOMA
     Dosage: 360 MG/BODY
     Route: 041
     Dates: start: 20140704, end: 20140704
  14. ELPLAT [Suspect]
     Active Substance: OXALIPLATIN
     Indication: PANCREATIC CARCINOMA
     Dosage: DOSE: 170 MG/BODY
     Route: 041
     Dates: start: 20140704, end: 20140704
  15. CALCIUM LEVOFOLINATE [Concomitant]
     Active Substance: LEVOLEUCOVORIN CALCIUM
     Dosage: 400 MG/BODY (206.7 MG/M2)
     Dates: start: 20140704, end: 20140704
  16. 5-FU [Concomitant]
     Active Substance: FLUOROURACIL
     Dosage: 800 MG/BODY (413.4 MG/M2) BOLUS,
     Route: 040
     Dates: start: 20140704, end: 20140704

REACTIONS (7)
  - Neutrophil count decreased [Unknown]
  - White blood cell count decreased [Unknown]
  - Ketosis [Recovered/Resolved]
  - Fatigue [Unknown]
  - Diarrhoea [Unknown]
  - Decreased appetite [Unknown]
  - Nausea [Unknown]

NARRATIVE: CASE EVENT DATE: 20140814
